FAERS Safety Report 9669882 (Version 1)
Quarter: 2013Q4

REPORT INFORMATION
  Report Type: Report from Study
  Country: KR (occurrence: KR)
  Receive Date: 20131105
  Receipt Date: 20131105
  Transmission Date: 20140711
  Serious: No
  Sender: FDA-Public Use
  Company Number: PHHY2013KR123651

PATIENT
  Age: 60 Year
  Sex: Male

DRUGS (6)
  1. AMN107 [Suspect]
     Indication: CHRONIC MYELOID LEUKAEMIA
     Dosage: 600 MG
     Dates: start: 20130531
  2. ARONAMIN C PLUS [Concomitant]
     Dosage: UNK
     Route: 048
     Dates: start: 20091130
  3. NATEGLINIDE [Concomitant]
     Indication: DIABETES MELLITUS
     Dosage: 90 MG, UNK
     Route: 048
     Dates: start: 20100614, end: 20130622
  4. PROPRANOLOL [Concomitant]
     Indication: BLOOD PRESSURE
     Dosage: 40 MG, UNK
     Route: 048
     Dates: start: 20111110
  5. URSA [Concomitant]
     Dosage: 200 MG, UNK
     Route: 048
     Dates: start: 20080514
  6. SILYMARIN [Concomitant]
     Dosage: 280 MG
     Route: 048
     Dates: start: 20080514

REACTIONS (1)
  - Jaundice [Not Recovered/Not Resolved]
